FAERS Safety Report 11414611 (Version 2)
Quarter: 2015Q4

REPORT INFORMATION
  Report Type: Report from Study
  Country: US (occurrence: US)
  Receive Date: 20150825
  Receipt Date: 20151006
  Transmission Date: 20160304
  Serious: No
  Sender: FDA-Public Use
  Company Number: PHEH2015US015278

PATIENT
  Sex: Male
  Weight: 74.84 kg

DRUGS (2)
  1. AMPHETAMINE [Concomitant]
     Active Substance: AMPHETAMINE
     Indication: FATIGUE
     Route: 065
  2. GILENYA [Suspect]
     Active Substance: FINGOLIMOD HYDROCHLORIDE
     Indication: MULTIPLE SCLEROSIS
     Dosage: 0.5 MG, QD
     Route: 048
     Dates: start: 20141125

REACTIONS (6)
  - Fatigue [Unknown]
  - Memory impairment [Unknown]
  - Weight decreased [Unknown]
  - Condition aggravated [Unknown]
  - Feeling abnormal [Unknown]
  - Nausea [Unknown]
